FAERS Safety Report 15637541 (Version 1)
Quarter: 2018Q4

REPORT INFORMATION
  Report Type: Spontaneous
  Country: US (occurrence: US)
  Receive Date: 20181114
  Receipt Date: 20181114
  Transmission Date: 20190205
  Serious: Yes (Disabling, Other)
  Sender: FDA-Public Use
  Company Number: None

PATIENT
  Age: 72 Year
  Sex: Female
  Weight: 71.21 kg

DRUGS (11)
  1. ATORVASTATIN [Concomitant]
     Active Substance: ATORVASTATIN
  2. SUCRALFATE. [Suspect]
     Active Substance: SUCRALFATE
     Indication: OESOPHAGEAL DISORDER
     Dosage: ?          QUANTITY:1 G GRAM(S);?
     Route: 048
     Dates: start: 20180811, end: 20180814
  3. ATENOLOL. [Concomitant]
     Active Substance: ATENOLOL
  4. LISINOPRIL. [Concomitant]
     Active Substance: LISINOPRIL
  5. ASPIRIN. [Concomitant]
     Active Substance: ASPIRIN
  6. AMOLIDIPINE [Concomitant]
  7. LEVOTHYROXINE. [Concomitant]
     Active Substance: LEVOTHYROXINE
  8. OMEPRAZOLE. [Concomitant]
     Active Substance: OMEPRAZOLE
  9. AMITRIPTYLINE [Concomitant]
     Active Substance: AMITRIPTYLINE
  10. SUCRALFATE. [Suspect]
     Active Substance: SUCRALFATE
     Indication: GASTRIC DISORDER
     Dosage: ?          QUANTITY:1 G GRAM(S);?
     Route: 048
     Dates: start: 20180811, end: 20180814
  11. VITAMIN D [Concomitant]
     Active Substance: CHOLECALCIFEROL

REACTIONS (3)
  - Anuria [None]
  - Abdominal distension [None]
  - Bowel movement irregularity [None]

NARRATIVE: CASE EVENT DATE: 20180814
